FAERS Safety Report 15016826 (Version 4)
Quarter: 2019Q1

REPORT INFORMATION
  Report Type: Report from Study
  Country: CA (occurrence: CA)
  Receive Date: 20180615
  Receipt Date: 20190117
  Transmission Date: 20190417
  Serious: Yes (Hospitalization)
  Sender: FDA-Public Use
  Company Number: CA-JNJFOC-20180515730

PATIENT
  Sex: Female
  Weight: 59.87 kg

DRUGS (1)
  1. SIMPONI [Suspect]
     Active Substance: GOLIMUMAB
     Indication: RHEUMATOID ARTHRITIS
     Dosage: STRENGTH = 50 MG
     Route: 058
     Dates: start: 20171220, end: 20180703

REACTIONS (7)
  - Fatigue [Unknown]
  - Muscular weakness [Unknown]
  - Drug ineffective [Unknown]
  - Pneumonia fungal [Not Recovered/Not Resolved]
  - Dry skin [Unknown]
  - Dry eye [Not Recovered/Not Resolved]
  - Arthralgia [Unknown]

NARRATIVE: CASE EVENT DATE: 2018
